APPROVED DRUG PRODUCT: SYNALGOS-DC-A
Active Ingredient: ACETAMINOPHEN; CAFFEINE; DIHYDROCODEINE BITARTRATE
Strength: 356.4MG;30MG;16MG
Dosage Form/Route: CAPSULE;ORAL
Application: A089166 | Product #001
Applicant: LEITNER PHARMACEUTICALS LLC
Approved: May 14, 1986 | RLD: No | RS: No | Type: DISCN